FAERS Safety Report 5886508-0 (Version None)
Quarter: 2008Q3

REPORT INFORMATION
  Report Type: 
  Country: None (occurrence: None)
  Receive Date: 20080917
  Receipt Date: 20080913
  Transmission Date: 20090109
  Serious: Yes (Hospitalization, Other)
  Sender: FDA-Public Use
  Company Number: DE-MERCK-0809DEU00073

PATIENT
  Sex: Female

DRUGS (1)
  1. FOSAMAX PLUS D [Suspect]
     Route: 048

REACTIONS (4)
  - BONE FORMATION INCREASED [None]
  - EXOSTOSIS [None]
  - MUCOSAL INFLAMMATION [None]
  - PLASMACYTOMA [None]
